FAERS Safety Report 5642209-5 (Version None)
Quarter: 2008Q1

REPORT INFORMATION
  Report Type: 
  Country: None (occurrence: None)
  Receive Date: 20080225
  Receipt Date: 20080212
  Transmission Date: 20080703
  Serious: Yes (Other)
  Sender: FDA-Public Use
  Company Number: S08-USA-00566-01

PATIENT
  Age: 87 Year
  Sex: Female

DRUGS (6)
  1. LEXAPRO [Suspect]
     Dosage: 10 MG QD PO
     Route: 048
     Dates: start: 20071201, end: 20080120
  2. ISOSORBIDE DINITRATE [Concomitant]
  3. PRINIVIL [Concomitant]
  4. COLACE (DOCUSATE SODIUM) [Concomitant]
  5. THIAMINE [Concomitant]
  6. WARFARIN SODIUM [Concomitant]

REACTIONS (1)
  - CONVULSION [None]
